FAERS Safety Report 6716030-0 (Version None)
Quarter: 2010Q2

REPORT INFORMATION
  Report Type: 
  Country: None (occurrence: None)
  Receive Date: 20100506
  Receipt Date: 20100506
  Transmission Date: 20101027
  Serious: Yes (Other)
  Sender: FDA-Public Use
  Company Number: None

PATIENT
  Age: 48 Year
  Sex: Female
  Weight: 65.7716 kg

DRUGS (2)
  1. NAFCILLIN [Suspect]
     Indication: SKIN INFECTION
     Dosage: 2 GRAMS EVERY 4 HOURS IV DRIP
     Route: 041
     Dates: start: 20100416, end: 20100503
  2. NAFCILLIN [Suspect]
     Dosage: 2 GRAMS EVERY 4 HOURS IV DRIP
     Route: 041

REACTIONS (2)
  - PRURITUS [None]
  - RASH [None]
